FAERS Safety Report 8471473-2 (Version None)
Quarter: 2012Q2

REPORT INFORMATION
  Report Type: 
  Country: None (occurrence: None)
  Receive Date: 20120627
  Receipt Date: 20120625
  Transmission Date: 20120825
  Serious: Yes (Hospitalization)
  Sender: FDA-Public Use
  Company Number: PHHO2012IL008920

PATIENT
  Sex: Female
  Weight: 59 kg

DRUGS (3)
  1. ACZ885 [Suspect]
     Indication: JUVENILE ARTHRITIS
     Dosage: 2 MG/KG, EVERY FOUR WEEK
     Route: 058
     Dates: start: 20090922, end: 20120503
  2. ACZ885 [Suspect]
     Dosage: 2 MG/KG, EVERY FOUR WEEKS
     Dates: start: 20110531
  3. BENZATHINE PENICILLIN G [Concomitant]
     Indication: PROPHYLAXIS
     Dosage: 1,200,000 U/IM
     Dates: start: 20040101, end: 20120604

REACTIONS (2)
  - HISTIOCYTOSIS HAEMATOPHAGIC [None]
  - CYTOMEGALOVIRUS INFECTION [None]
